FAERS Safety Report 18795149 (Version 2)
Quarter: 2023Q2

REPORT INFORMATION
  Report Type: Spontaneous
  Country: US (occurrence: US)
  Receive Date: 20210127
  Receipt Date: 20230620
  Transmission Date: 20230721
  Serious: No
  Sender: FDA-Public Use
  Company Number: US-PFIZER INC-2021051330

PATIENT
  Age: 84 Year
  Sex: Female

DRUGS (1)
  1. BRAFTOVI [Suspect]
     Active Substance: ENCORAFENIB
     Indication: Colon cancer
     Dosage: 300 MG, DAILY (TAKE WHOLE WITH OR WITHOUT FOOD)
     Route: 048

REACTIONS (1)
  - Laboratory test abnormal [Unknown]
